FAERS Safety Report 8202219-0 (Version None)
Quarter: 2012Q1

REPORT INFORMATION
  Report Type: 
  Country: None (occurrence: None)
  Receive Date: 20120312
  Receipt Date: 20120309
  Transmission Date: 20120608
  Serious: No
  Sender: FDA-Public Use
  Company Number: US-PFIZER INC-2012063555

PATIENT
  Sex: Female

DRUGS (4)
  1. GEODON [Suspect]
     Dosage: 40 MG, 2X/DAY
     Route: 048
     Dates: start: 20111027, end: 20111030
  2. GEODON [Suspect]
     Dosage: 60 MG, 2X/DAY
     Route: 048
     Dates: start: 20111031
  3. NEURONTIN [Suspect]
     Dosage: UNK
  4. GEODON [Suspect]
     Indication: BIPOLAR DISORDER
     Dosage: 20 MG, 2X/DAY
     Route: 048
     Dates: start: 20111024, end: 20111026

REACTIONS (1)
  - NIGHTMARE [None]
